FAERS Safety Report 9563160 (Version 1)
Quarter: 2013Q3

REPORT INFORMATION
  Report Type: Spontaneous
  Country: US (occurrence: US)
  Receive Date: 20130927
  Receipt Date: 20130927
  Transmission Date: 20140515
  Serious: No
  Sender: FDA-Public Use
  Company Number: US-BRISTOL-MYERS SQUIBB COMPANY-18701789

PATIENT
  Age: 68 Year
  Sex: Female

DRUGS (5)
  1. ONGLYZA TABS 5 MG [Suspect]
  2. GLIPIZIDE [Concomitant]
  3. METFORMIN [Concomitant]
  4. ASPIRIN [Concomitant]
  5. VITAMINS [Concomitant]

REACTIONS (2)
  - Urinary tract infection [Unknown]
  - Dizziness [Unknown]
